FAERS Safety Report 4383440-9 (Version None)
Quarter: 2004Q2

REPORT INFORMATION
  Report Type: 
  Country: None (occurrence: None)
  Receive Date: 20040618
  Receipt Date: 20040601
  Transmission Date: 20050107
  Serious: Yes (Hospitalization)
  Sender: FDA-Public Use
  Company Number: JP_040603275

PATIENT
  Age: 66 Year
  Sex: Male

DRUGS (4)
  1. ONCOVIN [Suspect]
     Indication: NON-HODGKIN'S LYMPHOMA
     Dosage: 1.4 MG/M2 OTHER
     Dates: start: 20040401
  2. CYCLOPHOSPHAMIDE [Concomitant]
  3. DOXORUBICIN HCL [Concomitant]
  4. PREDNISOLONE [Concomitant]

REACTIONS (2)
  - HYPERSENSITIVITY [None]
  - JAUNDICE [None]
